FAERS Safety Report 5789465-0 (Version None)
Quarter: 2008Q2

REPORT INFORMATION
  Report Type: 
  Country: None (occurrence: None)
  Receive Date: 20080626
  Receipt Date: 20080117
  Transmission Date: 20081010
  Serious: No
  Sender: FDA-Public Use
  Company Number: US-ASTRAZENECA-2008UW01438

PATIENT
  Sex: Female

DRUGS (6)
  1. PULMICORT FLEXHALER [Suspect]
     Indication: CHRONIC OBSTRUCTIVE PULMONARY DISEASE
     Route: 055
  2. WARFARIN SODIUM [Concomitant]
  3. BROVANA [Concomitant]
  4. FIBER [Concomitant]
  5. OMEPRAZOLE [Concomitant]
  6. ADVIL [Concomitant]

REACTIONS (1)
  - DYSPNOEA [None]
